FAERS Safety Report 10547967 (Version 1)
Quarter: 2014Q4

REPORT INFORMATION
  Report Type: Spontaneous
  Country: JP (occurrence: None)
  Receive Date: 20141024
  Receipt Date: 20141024
  Transmission Date: 20150529
  Serious: Yes (Hospitalization, Other)
  Sender: FDA-Public Use
  Company Number: JP2014JPN003134

PATIENT
  Age: 57 Year
  Sex: Male

DRUGS (1)
  1. EPZICOM [Suspect]
     Active Substance: ABACAVIR SULFATE\LAMIVUDINE
     Indication: HIV INFECTION

REACTIONS (8)
  - Drug resistance [None]
  - Dysarthria [None]
  - Blood HIV RNA increased [None]
  - AIDS dementia complex [None]
  - Cognitive disorder [None]
  - Amnesia [None]
  - Personality change [None]
  - White matter lesion [None]

NARRATIVE: CASE EVENT DATE: 201112
